FAERS Safety Report 7062632-4 (Version None)
Quarter: 2010Q4

REPORT INFORMATION
  Report Type: 
  Country: None (occurrence: None)
  Receive Date: 20101026
  Receipt Date: 20100329
  Transmission Date: 20110411
  Serious: No
  Sender: FDA-Public Use
  Company Number: US-PFIZER INC-2009284650

PATIENT
  Sex: Female

DRUGS (2)
  1. LIPITOR [Suspect]
     Dosage: 80 MG, UNK
  2. ACCUPRIL [Suspect]
     Dosage: UNK

REACTIONS (3)
  - DRUG DISPENSING ERROR [None]
  - DYSPHAGIA [None]
  - HYPERTENSION [None]
